FAERS Safety Report 6702840-2 (Version None)
Quarter: 2010Q2

REPORT INFORMATION
  Report Type: 
  Country: None (occurrence: None)
  Receive Date: 20100429
  Receipt Date: 20100419
  Transmission Date: 20101027
  Serious: Yes (Hospitalization)
  Sender: FDA-Public Use
  Company Number: US-ELI_LILLY_AND_COMPANY-US201002006532

PATIENT
  Sex: Female

DRUGS (23)
  1. FORTEO [Suspect]
     Indication: OSTEOPOROSIS
     Dosage: 20 UG, DAILY (1/D)
     Dates: start: 20080801
  2. PROTONIX [Concomitant]
  3. METFORMIN [Concomitant]
  4. LEXAPRO [Concomitant]
  5. DIGOXIN [Concomitant]
  6. CARDIZEM [Concomitant]
  7. SYNTHROID [Concomitant]
  8. HEPARIN [Concomitant]
  9. PREDNISONE [Concomitant]
  10. CELEXA [Concomitant]
  11. IRON [Concomitant]
  12. MULTI-VITAMIN [Concomitant]
  13. VITAMIN C [Concomitant]
  14. ZINC [Concomitant]
  15. RISPERDAL [Concomitant]
  16. PRAVACHOL [Concomitant]
  17. INSULIN ASPART [Concomitant]
  18. ULTRAM [Concomitant]
  19. DILTIAZEM HCL [Concomitant]
  20. SPIRIVA [Concomitant]
  21. LIPITOR [Concomitant]
  22. FLOVENT [Concomitant]
  23. VITAMIN D [Concomitant]

REACTIONS (5)
  - ACUTE RESPIRATORY FAILURE [None]
  - CHRONIC OBSTRUCTIVE PULMONARY DISEASE [None]
  - DRUG ADMINISTRATION ERROR [None]
  - MALAISE [None]
  - PNEUMONIA [None]
